FAERS Safety Report 8386410-9 (Version None)
Quarter: 2012Q2

REPORT INFORMATION
  Report Type: 
  Country: None (occurrence: None)
  Receive Date: 20120525
  Receipt Date: 20120522
  Transmission Date: 20120825
  Serious: Yes (Death)
  Sender: FDA-Public Use
  Company Number: IN-PFIZER INC-2012124458

PATIENT
  Sex: Female

DRUGS (3)
  1. SUTENT [Suspect]
     Dosage: 25 MG, UNK
  2. SUTENT [Suspect]
     Indication: METASTATIC RENAL CELL CARCINOMA
     Dosage: 37.5 MG, UNK
     Route: 048
  3. SUTENT [Suspect]
     Dosage: 12.5 MG, UNK

REACTIONS (3)
  - DEATH [None]
  - METASTATIC RENAL CELL CARCINOMA [None]
  - DISEASE PROGRESSION [None]
